FAERS Safety Report 5899357-4 (Version None)
Quarter: 2008Q3

REPORT INFORMATION
  Report Type: 
  Country: None (occurrence: None)
  Receive Date: 20080925
  Receipt Date: 20080917
  Transmission Date: 20090109
  Serious: Yes (Hospitalization, Other)
  Sender: FDA-Public Use
  Company Number: US-AMGEN-QUU308410

PATIENT
  Sex: Female

DRUGS (1)
  1. ENBREL [Suspect]
     Indication: RHEUMATOID ARTHRITIS
     Route: 058
     Dates: start: 20060728

REACTIONS (4)
  - HEPATIC CIRRHOSIS [None]
  - INJECTION SITE HAEMORRHAGE [None]
  - INNER EAR DISORDER [None]
  - NEUROPATHY PERIPHERAL [None]
